FAERS Safety Report 17242445 (Version 1)
Quarter: 2020Q1

REPORT INFORMATION
  Report Type: Spontaneous
  Country: US (occurrence: US)
  Receive Date: 20200107
  Receipt Date: 20200107
  Transmission Date: 20200409
  Serious: Yes (Other)
  Sender: FDA-Public Use
  Company Number: US-SA-2020SA001999

PATIENT
  Sex: Female

DRUGS (1)
  1. DULCOLAX NOS [Suspect]
     Active Substance: BISACODYL OR DOCUSATE SODIUM
     Indication: CONSTIPATION
     Dosage: 2 DF

REACTIONS (9)
  - Anal incontinence [Unknown]
  - Asthenia [Unknown]
  - Dizziness [Unknown]
  - Contusion [Unknown]
  - Abdominal pain [Unknown]
  - Gait inability [Unknown]
  - Abdominal pain lower [Unknown]
  - Hyperhidrosis [Unknown]
  - Loss of consciousness [Unknown]
